FAERS Safety Report 7443857-2 (Version None)
Quarter: 2011Q2

REPORT INFORMATION
  Report Type: 
  Country: None (occurrence: None)
  Receive Date: 20110428
  Receipt Date: 20080422
  Transmission Date: 20111010
  Serious: Yes (Death, Hospitalization, Other)
  Sender: FDA-Public Use
  Company Number: US-BAYER-200826591NA

PATIENT
  Age: 70 Year
  Sex: Male
  Weight: 145.13 kg

DRUGS (13)
  1. TRASYLOL [Suspect]
     Indication: CORONARY ARTERY BYPASS
     Dosage: 2 MILLION UNITS, LOADING DOSE
     Route: 042
     Dates: start: 20051018, end: 20051018
  2. LEVOTHYROXINE SODIUM [Concomitant]
     Dosage: 205 MG, UNK
     Route: 048
     Dates: end: 20051016
  3. TRASYLOL [Suspect]
     Indication: INTRA-AORTIC BALLOON PLACEMENT
     Dosage: 50 CC/HR INFUSION RATE
     Route: 042
     Dates: start: 20051018, end: 20051018
  4. AMARYL [Concomitant]
     Dosage: 4 MG, UNK
     Route: 048
     Dates: start: 20040406, end: 20051016
  5. ACETYLSALICYLIC ACID SRT [Concomitant]
     Dosage: 81 MG, UNK
     Route: 048
     Dates: end: 20051016
  6. ZOCOR [Concomitant]
     Dosage: 325 MG, UNK
     Route: 048
     Dates: end: 20051016
  7. ACTOS [Concomitant]
     Dosage: 15 MG, UNK
     Route: 048
     Dates: end: 20051016
  8. EPINEPHRINE [Concomitant]
     Dosage: 20% 500 CC
     Route: 042
  9. ALTACE [Concomitant]
     Dosage: 5 MG, UNK
     Route: 048
  10. RED BLOOD CELLS, CONCENTRATED [Concomitant]
     Dosage: 2 U, UNK
     Route: 042
  11. HEPARIN [Concomitant]
     Dosage: 1000 U, UNK
     Route: 042
  12. PHENYLEPHRINE [PHENYLEPHRINE] [Concomitant]
     Dosage: 25 MG/250 IN 5% DEXTROSE IN WATER
     Route: 042
  13. DOPAMINE HCL [Concomitant]
     Dosage: 800MG/500 ML IN 5% DEXTROSE AND WATER
     Route: 042

REACTIONS (6)
  - INJURY [None]
  - UNEVALUABLE EVENT [None]
  - ANXIETY [None]
  - FEAR [None]
  - PAIN [None]
  - RENAL FAILURE ACUTE [None]
